FAERS Safety Report 5811419-6 (Version None)
Quarter: 2008Q3

REPORT INFORMATION
  Report Type: 
  Country: None (occurrence: None)
  Receive Date: 20080716
  Receipt Date: 20080710
  Transmission Date: 20090109
  Serious: Yes (Hospitalization)
  Sender: FDA-Public Use
  Company Number: FR-JNJFOC-20080702224

PATIENT
  Age: 58 Year
  Sex: Male

DRUGS (5)
  1. OFLOCET [Suspect]
     Indication: BIOPSY PROSTATE
     Route: 048
     Dates: start: 20080129, end: 20080130
  2. ACETAMINOPHEN [Concomitant]
     Indication: DYSURIA
     Route: 065
  3. ACETAMINOPHEN [Concomitant]
     Indication: PYREXIA
     Route: 065
  4. LEXOMIL [Concomitant]
     Indication: DYSURIA
     Route: 065
  5. LEXOMIL [Concomitant]
     Indication: PYREXIA
     Route: 065

REACTIONS (4)
  - DYSURIA [None]
  - EPILEPSY [None]
  - MUSCULOSKELETAL DISORDER [None]
  - PYREXIA [None]
